FAERS Safety Report 8312223-X (Version None)
Quarter: 2012Q2

REPORT INFORMATION
  Report Type: 
  Country: None (occurrence: None)
  Receive Date: 20120425
  Receipt Date: 20120410
  Transmission Date: 20120825
  Serious: Yes (Other)
  Sender: FDA-Public Use
  Company Number: CHPA2012US003035

PATIENT
  Sex: Female

DRUGS (2)
  1. EXCEDRIN (MIGRAINE) [Suspect]
     Indication: NASOPHARYNGITIS
     Dosage: 1 DF, BID
     Route: 048
     Dates: start: 20110901, end: 20110901
  2. SYNTHROID [Concomitant]

REACTIONS (7)
  - INTESTINAL HAEMORRHAGE [None]
  - COLONIC POLYP [None]
  - ILEITIS [None]
  - HAEMORRHOIDS [None]
  - HYPERPLASIA [None]
  - OFF LABEL USE [None]
  - UNDERDOSE [None]
